FAERS Safety Report 26140854 (Version 1)
Quarter: 2025Q4

REPORT INFORMATION
  Report Type: Report from Study
  Country: EG (occurrence: EG)
  Receive Date: 20251210
  Receipt Date: 20251210
  Transmission Date: 20260118
  Serious: Yes (Hospitalization, Other)
  Sender: NOVO NORDISK
  Company Number: EG-NOVOPROD-1565886

PATIENT
  Age: 204 Month
  Sex: Female
  Weight: 50 kg

DRUGS (8)
  1. NOVORAPID [Suspect]
     Active Substance: INSULIN ASPART
     Indication: Type 1 diabetes mellitus
     Dosage: 29 U AT BREAKFAST, 29 U AT LUNCH AND 15 U OR 10 U AT DINNER
     Route: 058
  2. NOVORAPID [Suspect]
     Active Substance: INSULIN ASPART
     Dosage: 15 U, 15 U AND 10 U
     Route: 058
     Dates: start: 202502
  3. NOVORAPID [Suspect]
     Active Substance: INSULIN ASPART
     Dosage: 15 U, 15 U AND 10 U
     Route: 058
     Dates: start: 202507
  4. NOVORAPID [Suspect]
     Active Substance: INSULIN ASPART
     Dosage: 25U/50ML SALINE WITH BREAKFAST , 25U/50ML SALINE WITH LUNCH AND 25U/50ML SALINE WITH DINNER, BUT IF
     Route: 042
     Dates: start: 202510
  5. TRESIBA [Suspect]
     Active Substance: INSULIN DEGLUDEC
     Indication: Type 1 diabetes mellitus
     Dosage: 58 U
     Route: 058
  6. TRESIBA [Suspect]
     Active Substance: INSULIN DEGLUDEC
     Dosage: 32 U
     Route: 058
     Dates: start: 202502
  7. TRESIBA [Suspect]
     Active Substance: INSULIN DEGLUDEC
     Dosage: 32 U
     Route: 058
     Dates: start: 202507
  8. TRESIBA [Suspect]
     Active Substance: INSULIN DEGLUDEC
     Dosage: 60U
     Route: 058
     Dates: start: 202510

REACTIONS (8)
  - Diabetic ketoacidosis [Not Recovered/Not Resolved]
  - Insulin resistance [Not Recovered/Not Resolved]
  - Blood glucose increased [Unknown]
  - Helicobacter infection [Recovering/Resolving]
  - Bacterial infection [Recovering/Resolving]
  - Nasopharyngitis [Recovered/Resolved]
  - Herpes virus infection [Recovered/Resolved]
  - Drug ineffective [Unknown]

NARRATIVE: CASE EVENT DATE: 20250201
